FAERS Safety Report 23863537 (Version 2)
Quarter: 2024Q2

REPORT INFORMATION
  Report Type: Spontaneous
  Country: US (occurrence: None)
  Receive Date: 20240516
  Receipt Date: 20240603
  Transmission Date: 20240716
  Serious: No
  Sender: FDA-Public Use
  Company Number: 2024A091433

PATIENT
  Age: 19876 Day
  Sex: Female

DRUGS (2)
  1. FASENRA [Suspect]
     Active Substance: BENRALIZUMAB
     Route: 058
     Dates: start: 20240402
  2. FASENRA [Concomitant]
     Active Substance: BENRALIZUMAB

REACTIONS (10)
  - Arthralgia [Unknown]
  - Dysphagia [Not Recovered/Not Resolved]
  - Pruritus [Unknown]
  - Urticaria [Unknown]
  - Swelling face [Not Recovered/Not Resolved]
  - Skin disorder [Unknown]
  - Erythema [Unknown]
  - Eye swelling [Unknown]
  - Arthritis [Unknown]
  - Off label use [Unknown]

NARRATIVE: CASE EVENT DATE: 20240413
